FAERS Safety Report 15566532 (Version 2)
Quarter: 2018Q4

REPORT INFORMATION
  Report Type: Spontaneous
  Country: PL (occurrence: PL)
  Receive Date: 20181030
  Receipt Date: 20181101
  Transmission Date: 20190205
  Serious: Yes (Hospitalization)
  Sender: FDA-Public Use
  Company Number: PL-TEVA-2018-PL-970314

PATIENT
  Sex: Female
  Weight: 54.3 kg

DRUGS (25)
  1. ENCORTON [Concomitant]
     Active Substance: PREDNISONE
     Dates: start: 20180709
  2. PERFALGAN [Concomitant]
     Active Substance: ACETAMINOPHEN
     Dates: start: 20180622, end: 20180627
  3. FLORACTIN [Concomitant]
  4. HEPA-MERZ [Concomitant]
     Dates: start: 20180709, end: 20181001
  5. VITAMINUM B COMP. [Concomitant]
     Dates: start: 20180709
  6. GLUCOSE [Concomitant]
     Active Substance: DEXTROSE
  7. FILGOTINIB VS PLACEBO [Suspect]
     Active Substance: FILGOTINIB
     Indication: RHEUMATOID ARTHRITIS
     Dosage: 200 MILLIGRAM DAILY;
     Route: 048
     Dates: start: 20180529, end: 20180627
  8. PYRAZINAMID [Suspect]
     Active Substance: PYRAZINAMIDE
     Indication: TUBERCULOSIS
     Dosage: 1500 MILLIGRAM DAILY;
     Route: 048
     Dates: start: 20180706, end: 20181005
  9. METHOTREXATE. [Concomitant]
     Active Substance: METHOTREXATE
     Dates: start: 20160429, end: 20180702
  10. TORECAN [Concomitant]
     Active Substance: THIETHYLPERAZINE MALATE
     Dates: start: 20180702, end: 20180709
  11. DEXAVEN [Concomitant]
     Active Substance: DEXAMETHASONE
     Dates: start: 20180709, end: 20180830
  12. FILGOTINIB VS PLACEBO [Suspect]
     Active Substance: FILGOTINIB
     Dosage: 100 MILLIGRAM DAILY;
     Route: 048
     Dates: start: 20180529, end: 20180627
  13. RIFAMAZID [Suspect]
     Active Substance: ISONIAZID\RIFAMPIN
     Indication: TUBERCULOSIS
     Dosage: 450 MILLIGRAM DAILY;
     Route: 048
     Dates: start: 20180706
  14. ACIDUM FOLICUM [Concomitant]
     Active Substance: FOLIC ACID
     Dates: start: 20160429, end: 20180702
  15. NOLPAZA [Concomitant]
     Active Substance: PANTOPRAZOLE SODIUM
     Dates: start: 20160429, end: 20180708
  16. ETHAMBUTOL [Suspect]
     Active Substance: ETHAMBUTOL HYDROCHLORIDE
     Indication: TUBERCULOSIS
     Dosage: 1250 MILLIGRAM DAILY;
     Route: 048
     Dates: start: 20180706
  17. OLFEN [Concomitant]
     Active Substance: DICLOFENAC SODIUM
     Dates: start: 20160429
  18. ESSELIV [Concomitant]
     Dates: start: 20180709, end: 20180830
  19. PRENOME [Concomitant]
     Active Substance: OMEPRAZOLE
     Dates: start: 20180709, end: 20180830
  20. CIPROFLOXACIN. [Concomitant]
     Active Substance: CIPROFLOXACIN
     Dates: start: 20180709, end: 20180830
  21. NACL [Concomitant]
     Active Substance: SODIUM CHLORIDE
     Dates: start: 20180702, end: 20180709
  22. METYPRED [Concomitant]
     Active Substance: METHYLPREDNISOLONE
     Dates: start: 20160812
  23. DORETA [Concomitant]
     Active Substance: ACETAMINOPHEN\TRAMADOL HYDROCHLORIDE
     Dates: start: 20180622, end: 20180627
  24. MANNITOL. [Concomitant]
     Active Substance: MANNITOL
     Dates: start: 20180702, end: 20180709
  25. ESSENTIALE [Concomitant]
     Dates: start: 20180709

REACTIONS (1)
  - Hepatotoxicity [Recovered/Resolved]

NARRATIVE: CASE EVENT DATE: 20180709
